FAERS Safety Report 10216078 (Version 1)
Quarter: 2014Q2

REPORT INFORMATION
  Report Type: Spontaneous
  Country: US (occurrence: None)
  Receive Date: 20140603
  Receipt Date: 20140603
  Transmission Date: 20141212
  Serious: Yes (Life-Threatening, Other)
  Sender: FDA-Public Use
  Company Number: None

PATIENT
  Age: 62 Year
  Sex: Male

DRUGS (1)
  1. PERCOCET [Suspect]
     Indication: PAIN
     Dosage: 1 TO 2 TABS?FOUR TIME DAILY?TAKEN BY MOUTH
     Route: 048
     Dates: start: 20140512

REACTIONS (4)
  - Anxiety [None]
  - Suicidal ideation [None]
  - Drug ineffective [None]
  - Product substitution issue [None]
